FAERS Safety Report 11145783 (Version 1)
Quarter: 2015Q2

REPORT INFORMATION
  Report Type: Spontaneous
  Country: CN (occurrence: None)
  Receive Date: 20150526
  Receipt Date: 20150526
  Transmission Date: 20150821
  Serious: Yes (Other)
  Sender: FDA-Public Use
  Company Number: FK201502353

PATIENT
  Age: 54 Year
  Sex: Male

DRUGS (4)
  1. SODIUM CHLORIDE 0.9% [Suspect]
     Active Substance: SODIUM CHLORIDE
     Indication: PRODUCT USED FOR UNKNOWN INDICATION
     Route: 041
  2. CARTHAMUS TINCTORIUS [Suspect]
     Active Substance: SAFFLOWER
     Indication: PRODUCT USED FOR UNKNOWN INDICATION
     Route: 041
  3. GLUCOSE 5% [Concomitant]
     Active Substance: DEXTROSE
  4. SHUXUETONG (HIRUDIN) [Concomitant]

REACTIONS (3)
  - Urticaria [None]
  - Infusion related reaction [None]
  - Dyspnoea [None]
